FAERS Safety Report 25212858 (Version 1)
Quarter: 2025Q2

REPORT INFORMATION
  Report Type: Spontaneous
  Country: US (occurrence: US)
  Receive Date: 20250418
  Receipt Date: 20250418
  Transmission Date: 20250716
  Serious: No
  Sender: AUROBINDO
  Company Number: US-AUROBINDO-AUR-APL-2024-050948

PATIENT
  Age: 50 Year
  Sex: Female
  Weight: 70.3 kg

DRUGS (2)
  1. ARMODAFINIL [Suspect]
     Active Substance: ARMODAFINIL
     Indication: Chronic fatigue syndrome
     Dosage: 50 MILLIGRAM, TWO TIMES A DAY
     Route: 065
     Dates: start: 20240920, end: 20241011
  2. ARMODAFINIL [Suspect]
     Active Substance: ARMODAFINIL
     Indication: Sleep apnoea syndrome

REACTIONS (6)
  - Rash pruritic [Recovered/Resolved]
  - Hypersensitivity [Not Recovered/Not Resolved]
  - Pruritus [Not Recovered/Not Resolved]
  - Urticaria [Not Recovered/Not Resolved]
  - Rash [Not Recovered/Not Resolved]
  - Product substitution issue [Unknown]

NARRATIVE: CASE EVENT DATE: 20241008
